FAERS Safety Report 16008167 (Version 3)
Quarter: 2019Q2

REPORT INFORMATION
  Report Type: Spontaneous
  Country: ES (occurrence: ES)
  Receive Date: 20190224
  Receipt Date: 20190502
  Transmission Date: 20190711
  Serious: Yes (Other)
  Sender: FDA-Public Use
  Company Number: ES-PROVELL PHARMACEUTICALS-2063126

PATIENT
  Age: 49 Year
  Sex: Female
  Weight: 57 kg

DRUGS (10)
  1. PROGEFFIK [Suspect]
     Active Substance: PROGESTERONE
     Dates: start: 20080126
  2. YODUK [Concomitant]
  3. EUTHYROX [Suspect]
     Active Substance: LEVOTHYROXINE SODIUM
     Dates: start: 20080905
  4. EUTHYROX [Suspect]
     Active Substance: LEVOTHYROXINE SODIUM
     Dates: start: 20080617
  5. ACFOL [Suspect]
     Active Substance: FOLIC ACID
     Dates: start: 20080215
  6. EUTHYROX [Suspect]
     Active Substance: LEVOTHYROXINE SODIUM
     Indication: HYPOTHYROIDISM
     Dates: start: 20080509
  7. NERVOBION [CYANOCOBALAMIN\PYRIDOXINE\THIAMINE] [Suspect]
     Active Substance: CYANOCOBALAMIN\PYRIDOXINE\THIAMINE
     Dates: start: 20080531, end: 20081007
  8. EUTHYROX [Suspect]
     Active Substance: LEVOTHYROXINE SODIUM
     Dates: start: 20080527
  9. EUTHYROX [Suspect]
     Active Substance: LEVOTHYROXINE SODIUM
  10. DOCOSAHEXAENOIC ACID [Concomitant]
     Active Substance: DOCONEXENT

REACTIONS (14)
  - Placental hypertrophy [None]
  - Incorrect product administration duration [None]
  - Inhibitory drug interaction [None]
  - Diarrhoea [None]
  - Cough [None]
  - Secretion discharge [None]
  - Vomiting [None]
  - Complication of pregnancy [Recovered/Resolved]
  - Product communication issue [None]
  - Live birth [Recovered/Resolved]
  - Maternal exposure during pregnancy [Recovered/Resolved]
  - Amniotic fluid volume increased [None]
  - Vaginal discharge [None]
  - Dysphonia [None]

NARRATIVE: CASE EVENT DATE: 2008
